FAERS Safety Report 15371413 (Version 1)
Quarter: 2018Q3

REPORT INFORMATION
  Report Type: Spontaneous
  Country: US (occurrence: US)
  Receive Date: 20180905
  Receipt Date: 20180905
  Transmission Date: 20181010
  Serious: No
  Sender: FDA-Public Use
  Company Number: None

PATIENT
  Age: 31 Year
  Sex: Female
  Weight: 74.25 kg

DRUGS (6)
  1. HYDROXY CUT BLACK [Concomitant]
  2. ICY HOT MEDICATED NO MESS APPLICATOR [Suspect]
     Active Substance: MENTHOL
     Indication: MYALGIA
     Dosage: ?          OTHER STRENGTH:UNKNOWN;QUANTITY:1 ROLL ON;?
     Route: 061
     Dates: start: 20180905, end: 20180905
  3. BURPROPHIN [Concomitant]
  4. LEVOTHYROXIN [Concomitant]
     Active Substance: LEVOTHYROXINE
  5. XANAX [Concomitant]
     Active Substance: ALPRAZOLAM
  6. SPRINTEC [Concomitant]
     Active Substance: ETHINYL ESTRADIOL\NORGESTIMATE

REACTIONS (1)
  - Application site burn [None]

NARRATIVE: CASE EVENT DATE: 20180905
